FAERS Safety Report 5675399-9 (Version None)
Quarter: 2008Q1

REPORT INFORMATION
  Report Type: 
  Country: None (occurrence: None)
  Receive Date: 20080320
  Receipt Date: 20080318
  Transmission Date: 20080703
  Serious: Yes (Life-Threatening)
  Sender: FDA-Public Use
  Company Number: GB-MERCK-0803GBR00072

PATIENT
  Age: 53 Year
  Sex: Female
  Weight: 99 kg

DRUGS (2)
  1. ZOCOR [Suspect]
     Route: 065
  2. KLIOVANCE [Suspect]
     Indication: HORMONE REPLACEMENT THERAPY
     Route: 048
     Dates: end: 20071001

REACTIONS (2)
  - ANAPHYLACTIC REACTION [None]
  - WHEEZING [None]
